FAERS Safety Report 12446762 (Version 1)
Quarter: 2016Q2

REPORT INFORMATION
  Report Type: Spontaneous
  Country: US (occurrence: US)
  Receive Date: 20160608
  Receipt Date: 20160608
  Transmission Date: 20160815
  Serious: No
  Sender: FDA-Public Use
  Company Number: US-PFIZER INC-2016278178

PATIENT
  Age: 63 Year
  Sex: Male

DRUGS (1)
  1. SUTENT [Suspect]
     Active Substance: SUNITINIB MALATE
     Indication: NEOPLASM MALIGNANT
     Dosage: 50 MG, CYCLIC (Q DAILY X14 DAYS, 7 DAYS OFF)

REACTIONS (5)
  - Dizziness [Unknown]
  - Dehydration [Unknown]
  - Disease progression [Unknown]
  - Neoplasm malignant [Unknown]
  - Nausea [Unknown]
